FAERS Safety Report 15914774 (Version 1)
Quarter: 2019Q1

REPORT INFORMATION
  Report Type: Spontaneous
  Country: US (occurrence: US)
  Receive Date: 20190114
  Receipt Date: 20190114
  Transmission Date: 20190417
  Serious: No
  Sender: FDA-Public Use
  Company Number: None

PATIENT
  Age: 38 Year
  Sex: Female

DRUGS (1)
  1. TASIGNA [Suspect]
     Active Substance: NILOTINIB

REACTIONS (4)
  - Skin exfoliation [None]
  - Vertigo [None]
  - Pyrexia [None]
  - Dizziness [None]

NARRATIVE: CASE EVENT DATE: 20190112
